FAERS Safety Report 16615274 (Version 5)
Quarter: 2022Q1

REPORT INFORMATION
  Report Type: Report from Study
  Country: CH (occurrence: None)
  Receive Date: 20190723
  Receipt Date: 20220104
  Transmission Date: 20220423
  Serious: Yes (Hospitalization)
  Sender: FDA-Public Use
  Company Number: CH-ROCHE-2357914

PATIENT
  Age: 74 Year
  Sex: Male
  Weight: 83 kg

DRUGS (14)
  1. OBINUTUZUMAB [Suspect]
     Active Substance: OBINUTUZUMAB
     Indication: Chronic lymphocytic leukaemia
     Dosage: DATE OF MOST RECENT DOSE PRIOR TO SAE WAS 19/JUN/2019 1000 MG
     Route: 042
     Dates: start: 20190128, end: 20210904
  2. VENETOCLAX [Suspect]
     Active Substance: VENETOCLAX
     Indication: Chronic lymphocytic leukaemia
     Dosage: DATE OF MOST RECENT DOSE 400 MG PRIOR TO SAE WAS 15/JUL/2019, ON 16/DEC/2021 200 MG?CYCLE 1: 20 MG (
     Route: 048
     Dates: start: 20190219, end: 20190904
  3. IBRUTINIB [Suspect]
     Active Substance: IBRUTINIB
     Indication: Chronic lymphocytic leukaemia
     Dosage: DATE OF NOST RECENT DOSE PRIOR TO SAE WAS 16/JUL/2019
     Route: 048
     Dates: start: 20190128, end: 20190904
  4. GRANISETRON [Concomitant]
     Active Substance: GRANISETRON
     Route: 042
     Dates: start: 20210921, end: 20211215
  5. GRANISETRON [Concomitant]
     Active Substance: GRANISETRON
     Route: 048
     Dates: start: 20210922
  6. BISOPROLOL [Concomitant]
     Active Substance: BISOPROLOL
     Route: 048
     Dates: start: 20190728
  7. EDOXABAN [Concomitant]
     Active Substance: EDOXABAN
     Route: 048
     Dates: start: 20200915
  8. ACETAMINOPHEN [Concomitant]
     Active Substance: ACETAMINOPHEN
     Dosage: DAY 1 EACH CYCLE
     Route: 048
     Dates: start: 20210921
  9. METHYLPREDNISOLONE [Concomitant]
     Active Substance: METHYLPREDNISOLONE
     Dosage: DAY 1 EACH CYCLE
     Route: 042
     Dates: start: 20210921, end: 20211124
  10. CLEMASTINE [Concomitant]
     Active Substance: CLEMASTINE
     Dosage: DAY 1 EACH CYCLE
     Route: 042
     Dates: start: 20210921, end: 20211124
  11. SULFAMETHOXAZOLE\TRIMETHOPRIM [Concomitant]
     Active Substance: SULFAMETHOXAZOLE\TRIMETHOPRIM
     Dates: start: 20210921
  12. VALACYCLOVIR HYDROCHLORIDE [Concomitant]
     Active Substance: VALACYCLOVIR HYDROCHLORIDE
     Dates: start: 20210921
  13. CHOLECALCIFEROL [Concomitant]
     Active Substance: CHOLECALCIFEROL
     Dates: start: 20210921
  14. ALLOPURINOL [Concomitant]
     Active Substance: ALLOPURINOL
     Dates: start: 20210921

REACTIONS (2)
  - Acute kidney injury [Recovering/Resolving]
  - Richter^s syndrome [Not Recovered/Not Resolved]

NARRATIVE: CASE EVENT DATE: 20190703
